FAERS Safety Report 5090113-6 (Version None)
Quarter: 2006Q3

REPORT INFORMATION
  Report Type: 
  Country: None (occurrence: None)
  Receive Date: 20060823
  Receipt Date: 20060814
  Transmission Date: 20061208
  Serious: Yes (Other)
  Sender: FDA-Public Use
  Company Number: 2006093383

PATIENT
  Sex: Female
  Weight: 68.0396 kg

DRUGS (2)
  1. DOSTINEX [Suspect]
     Indication: BLOOD PROLACTIN INCREASED
     Dosage: (0.5 MG, 1 IN 1 WK)
     Dates: start: 20031201
  2. ADVIL [Concomitant]

REACTIONS (12)
  - CONDITION AGGRAVATED [None]
  - DIPLOPIA [None]
  - DIZZINESS [None]
  - EYE BURNS [None]
  - EYE DISORDER [None]
  - EYE PAIN [None]
  - HEADACHE [None]
  - PAIN [None]
  - PHARMACEUTICAL PRODUCT COMPLAINT [None]
  - POOR QUALITY DRUG ADMINISTERED [None]
  - SLEEP DISORDER [None]
  - VISUAL DISTURBANCE [None]
